FAERS Safety Report 5618194-9 (Version None)
Quarter: 2008Q1

REPORT INFORMATION
  Report Type: 
  Country: None (occurrence: None)
  Receive Date: 20080207
  Receipt Date: 20071203
  Transmission Date: 20080703
  Serious: No
  Sender: FDA-Public Use
  Company Number: A0696999A

PATIENT
  Age: 33 Year
  Sex: Female

DRUGS (3)
  1. PAXIL [Suspect]
     Indication: ANXIETY DISORDER
     Dosage: 10MG PER DAY
     Route: 048
     Dates: start: 20030501
  2. PAXIL CR [Suspect]
     Indication: ANXIETY DISORDER
     Dosage: 12.5MG PER DAY
     Route: 048
     Dates: start: 20030101
  3. NO CONCURRENT MEDICATION [Concomitant]

REACTIONS (8)
  - ACNE [None]
  - AGITATION [None]
  - CRYING [None]
  - DISTURBANCE IN ATTENTION [None]
  - DRUG INEFFECTIVE [None]
  - IRRITABILITY [None]
  - SOMNOLENCE [None]
  - WITHDRAWAL SYNDROME [None]
